FAERS Safety Report 20742506 (Version 2)
Quarter: 2022Q3

REPORT INFORMATION
  Report Type: Spontaneous
  Country: US (occurrence: US)
  Receive Date: 20220424
  Receipt Date: 20220704
  Transmission Date: 20221027
  Serious: No
  Sender: FDA-Public Use
  Company Number: US-BRISTOL-MYERS SQUIBB COMPANY-2022-023290

PATIENT
  Age: 58 Year
  Sex: Female

DRUGS (1)
  1. REVLIMID [Suspect]
     Active Substance: LENALIDOMIDE
     Indication: Plasma cell myeloma in remission
     Dosage: DAILY FOR 21 DAYS ON AND 7 DAYS?LOT NUMBER: A3691A WITH EXPIRY DATE : 30-06-2024
     Route: 048
     Dates: start: 201711

REACTIONS (3)
  - Groin pain [Unknown]
  - Gait disturbance [Unknown]
  - Dizziness [Unknown]
